FAERS Safety Report 5357104-9 (Version None)
Quarter: 2007Q2

REPORT INFORMATION
  Report Type: 
  Country: None (occurrence: None)
  Receive Date: 20070612
  Receipt Date: 20070601
  Transmission Date: 20071010
  Serious: Yes (Hospitalization)
  Sender: FDA-Public Use
  Company Number: 6032249

PATIENT
  Age: 80 Year
  Sex: Male

DRUGS (7)
  1. LODOZ  5 MG/6.25 MG (TABLET) (HYDROCHLOROTHIAZIDE, BISOPROLOL FUMARATE [Suspect]
     Indication: HYPERTENSION
     Dosage: 1 DOSAGE FORMS (1 DOSAGE FORMS, 1 D)
     Dates: end: 20070322
  2. INEXIUM ( GASTRO-RESISTANT TABLET) (ESOMEPRAZOLE MAGNESIUM) [Suspect]
     Indication: DRUG USE FOR UNKNOWN INDICATION
     Dosage: 20 MG (20 MG, 1 D)
     Dates: start: 20070227, end: 20070322
  3. ATORVASTATIN CALCIUM [Concomitant]
  4. COVERSYL (TABLET) (PERINDOPRIL) [Concomitant]
  5. TANAKAN (TABLET) (GINKGO BILOBA EXTRACT) [Concomitant]
  6. PLAVIX [Concomitant]
  7. LERCANIDIPINE [Concomitant]

REACTIONS (6)
  - APATHY [None]
  - DRUG INTERACTION [None]
  - FALL [None]
  - FATIGUE [None]
  - HYPONATRAEMIA [None]
  - PSYCHOMOTOR RETARDATION [None]
